FAERS Safety Report 9176519 (Version 1)
Quarter: 2013Q1

REPORT INFORMATION
  Report Type: Spontaneous
  Country: US (occurrence: None)
  Receive Date: 20130320
  Receipt Date: 20130320
  Transmission Date: 20140127
  Serious: Yes (Life-Threatening, Hospitalization)
  Sender: FDA-Public Use
  Company Number: None

PATIENT
  Age: 88 Year
  Sex: Male
  Weight: 49.9 kg

DRUGS (1)
  1. WARFARIN [Suspect]
     Indication: ATRIAL FIBRILLATION
     Dosage: EVERY DAY   PO?~02/18/2008  THRU   ~01/08/2013
     Route: 048
     Dates: start: 20080218, end: 20130108

REACTIONS (9)
  - Rectal haemorrhage [None]
  - Diverticulum [None]
  - Gastrointestinal tract irritation [None]
  - Pulseless electrical activity [None]
  - Cardiac arrest [None]
  - Gastric haemorrhage [None]
  - Haematocrit decreased [None]
  - Haemoglobin decreased [None]
  - Platelet count decreased [None]
